FAERS Safety Report 5095010-8 (Version None)
Quarter: 2006Q3

REPORT INFORMATION
  Report Type: 
  Country: None (occurrence: None)
  Receive Date: 20060901
  Receipt Date: 20060823
  Transmission Date: 20061208
  Serious: Yes (Hospitalization, Other)
  Sender: FDA-Public Use
  Company Number: US-AVENTIS-200617101US

PATIENT
  Age: 69 Year
  Sex: Female

DRUGS (8)
  1. LANTUS [Suspect]
     Indication: DIABETES MELLITUS NON-INSULIN-DEPENDENT
  2. PREMARIN [Concomitant]
     Dosage: DOSE: UNK
  3. NASALCROM [Concomitant]
     Dosage: DOSE: UNK
  4. TOPROL-XL [Concomitant]
     Dosage: DOSE: UNK
  5. PREVACID [Concomitant]
     Dosage: DOSE: UNK
  6. LIBRAX [Concomitant]
     Dosage: DOSE: UNK
  7. FLAGYL [Concomitant]
     Dosage: DOSE: UNK
  8. DRUG USED IN DIABETES [Concomitant]

REACTIONS (10)
  - ABDOMINAL DISTENSION [None]
  - ANOREXIA [None]
  - ASTHENIA [None]
  - BLOOD GLUCOSE DECREASED [None]
  - CATARACT [None]
  - GASTRIC DISORDER [None]
  - GASTROINTESTINAL DISORDER [None]
  - NAUSEA [None]
  - NERVOUSNESS [None]
  - VISION BLURRED [None]
